FAERS Safety Report 5266579-5 (Version None)
Quarter: 2007Q1

REPORT INFORMATION
  Report Type: 
  Country: None (occurrence: None)
  Receive Date: 20070315
  Receipt Date: 20070305
  Transmission Date: 20070707
  Serious: Yes (Other)
  Sender: FDA-Public Use
  Company Number: US-PFIZER INC-2007004483

PATIENT
  Sex: Female
  Weight: 59 kg

DRUGS (8)
  1. NEURONTIN [Suspect]
     Indication: CARPAL TUNNEL SYNDROME
     Route: 048
  2. TENEX [Concomitant]
     Indication: HYPERTENSION
  3. VALSARTAN [Concomitant]
  4. ACETYLSALICYLIC ACID SRT [Concomitant]
  5. MONTELUKAST SODIUM [Concomitant]
  6. ZOCOR [Concomitant]
  7. FOLIC ACID [Concomitant]
  8. CALTRATE [Concomitant]

REACTIONS (4)
  - LOOSE TOOTH [None]
  - NAUSEA [None]
  - PAIN [None]
  - PAIN IN JAW [None]
